FAERS Safety Report 5795148-3 (Version None)
Quarter: 2008Q2

REPORT INFORMATION
  Report Type: 
  Country: None (occurrence: None)
  Receive Date: 20080630
  Receipt Date: 20080529
  Transmission Date: 20081010
  Serious: No
  Sender: FDA-Public Use
  Company Number: US-BRISTOL-MYERS SQUIBB COMPANY-14193098

PATIENT
  Age: 51 Year
  Sex: Male

DRUGS (11)
  1. ORENCIA [Suspect]
     Indication: RHEUMATOID ARTHRITIS
     Route: 042
     Dates: start: 20080501
  2. PREDNISONE [Concomitant]
  3. METHOTREXATE [Concomitant]
  4. PLAQUENIL [Concomitant]
  5. NAPROXEN [Concomitant]
  6. LASIX [Concomitant]
  7. K-DUR [Concomitant]
  8. FOLIC ACID [Concomitant]
  9. ASPIRIN [Concomitant]
  10. OS-CAL + D [Concomitant]
  11. ATACAND [Concomitant]

REACTIONS (3)
  - BLISTER [None]
  - PRURITUS [None]
  - URTICARIA [None]
